FAERS Safety Report 19390083 (Version 1)
Quarter: 2021Q2

REPORT INFORMATION
  Report Type: Spontaneous
  Country: US (occurrence: US)
  Receive Date: 20210608
  Receipt Date: 20210608
  Transmission Date: 20210717
  Serious: Yes (Death)
  Sender: FDA-Public Use
  Company Number: US-FRESENIUS MEDICAL CARE RENAL THERAPIES GROUP-FMC-2106-000721

PATIENT
  Age: 58 Year
  Sex: Male
  Weight: 79.5 kg

DRUGS (18)
  1. DELFLEX WITH DEXTROSE 2.5% LOW MAGNESIUM LOW CALCIUM [Suspect]
     Active Substance: CALCIUM CHLORIDE\DEXTROSE\MAGNESIUM CHLORIDE\SODIUM CHLORIDE\SODIUM LACTATE
     Indication: END STAGE RENAL DISEASE
     Dosage: 4 EXCHANGES, FILL VOLUME 2500 ML, DWELL TIME 1 HOUR 30 MIN, NO LAST FILL, NO DAYTIME EXCHANGE, SINCE
     Route: 033
  2. CHOLECALCIFEROL [Concomitant]
     Active Substance: CHOLECALCIFEROL
  3. ONDANSETRON [Concomitant]
     Active Substance: ONDANSETRON
  4. CLOPIDOGREL [Concomitant]
     Active Substance: CLOPIDOGREL BISULFATE
  5. LACTULOSE. [Concomitant]
     Active Substance: LACTULOSE
  6. OMEPRAZOLE. [Concomitant]
     Active Substance: OMEPRAZOLE
  7. DELFLEX WITH DEXTROSE 4.25% LOW MAGNESIUM LOW CALCIUM [Suspect]
     Active Substance: CALCIUM CHLORIDE\DEXTROSE\MAGNESIUM CHLORIDE\SODIUM CHLORIDE\SODIUM LACTATE
     Indication: END STAGE RENAL DISEASE
     Dosage: 4 EXCHANGES, FILL VOLUME 2500 ML, DWELL TIME 1 HOUR 30 MIN, NO LAST FILL, NO DAYTIME EXCHANGE, SINCE
     Route: 033
  8. DELFLEX WITH DEXTROSE 1.5% LOW MAGNESIUM LOW CALCIUM [Suspect]
     Active Substance: CALCIUM CHLORIDE\DEXTROSE\MAGNESIUM CHLORIDE\SODIUM CHLORIDE\SODIUM LACTATE
     Indication: END STAGE RENAL DISEASE
     Dosage: 4 EXCHANGES, FILL VOLUME 2500 ML, DWELL TIME 1 HOUR 30 MIN, NO LAST FILL, NO DAYTIME EXCHANGE, SINCE
     Route: 033
  9. EZETIMIBE. [Concomitant]
     Active Substance: EZETIMIBE
  10. ISOSORBIDE DINITRATE. [Concomitant]
     Active Substance: ISOSORBIDE DINITRATE
  11. METOPROLOL TARTRATE. [Concomitant]
     Active Substance: METOPROLOL TARTRATE
  12. GENTAMYCIN [Concomitant]
     Active Substance: GENTAMICIN
  13. PROMETHAZINE [Concomitant]
     Active Substance: PROMETHAZINE HYDROCHLORIDE
  14. AMLODIPINE [Concomitant]
     Active Substance: AMLODIPINE BESYLATE
  15. ASPIRIN. [Concomitant]
     Active Substance: ASPIRIN
  16. CALCITRIOL. [Concomitant]
     Active Substance: CALCITRIOL
  17. INSULIN [Concomitant]
     Active Substance: INSULIN NOS
  18. HYDRALAZINE [Concomitant]
     Active Substance: HYDRALAZINE HYDROCHLORIDE

REACTIONS (1)
  - Chronic kidney disease [Fatal]
